FAERS Safety Report 23533776 (Version 2)
Quarter: 2024Q1

REPORT INFORMATION
  Report Type: Spontaneous
  Country: US (occurrence: US)
  Receive Date: 20240216
  Receipt Date: 20240304
  Transmission Date: 20240409
  Serious: No
  Sender: FDA-Public Use
  Company Number: US-Eisai-EC-2024-157729

PATIENT
  Age: 72 Year
  Sex: Female
  Weight: 71.82 kg

DRUGS (2)
  1. LEQEMBI [Suspect]
     Active Substance: LECANEMAB-IRMB
     Indication: Product used for unknown indication
     Route: 042
     Dates: start: 20231122
  2. LEQEMBI [Suspect]
     Active Substance: LECANEMAB-IRMB
     Dosage: 4TH INFUSION
     Route: 042
     Dates: start: 20240110, end: 20240110

REACTIONS (7)
  - Dyspnoea [Recovered/Resolved]
  - Abdominal pain [Recovered/Resolved]
  - Hypertension [Recovered/Resolved]
  - Chest pain [Recovered/Resolved]
  - Dizziness [Recovered/Resolved]
  - Nausea [Recovered/Resolved]
  - Amyloid related imaging abnormality-oedema/effusion [Unknown]

NARRATIVE: CASE EVENT DATE: 20240110
